FAERS Safety Report 6081615-4 (Version None)
Quarter: 2009Q1

REPORT INFORMATION
  Report Type: 
  Country: None (occurrence: None)
  Receive Date: 20090218
  Receipt Date: 20090206
  Transmission Date: 20090719
  Serious: Yes (Hospitalization)
  Sender: FDA-Public Use
  Company Number: DK-PFIZER INC-2009152125

PATIENT

DRUGS (8)
  1. BLINDED *PLACEBO [Suspect]
     Indication: NON-SMALL CELL LUNG CANCER
     Dosage: 37.5 MG, 1X/DAY
     Route: 048
     Dates: start: 20080904, end: 20081222
  2. BLINDED SUNITINIB MALATE [Suspect]
     Indication: NON-SMALL CELL LUNG CANCER
     Dosage: 37.5 MG, 1X/DAY
     Route: 048
     Dates: start: 20080904, end: 20081222
  3. *ERLOTINIB [Suspect]
     Indication: NON-SMALL CELL LUNG CANCER
     Dosage: 150 MG, 1X/DAY
     Route: 048
     Dates: start: 20080904, end: 20081222
  4. ACICLOVIR [Concomitant]
     Dosage: UNK
     Route: 048
     Dates: start: 20081203
  5. FOSAMAX [Concomitant]
     Dosage: UNK
     Route: 048
  6. PARACETAMOL [Concomitant]
     Dosage: UNK
     Route: 048
     Dates: start: 20081024
  7. DIGOXIN [Concomitant]
  8. METOPROLOL [Concomitant]

REACTIONS (4)
  - DEHYDRATION [None]
  - DIARRHOEA [None]
  - FEBRILE NEUTROPENIA [None]
  - LUNG INFECTION [None]
